FAERS Safety Report 5252341-6 (Version None)
Quarter: 2007Q1

REPORT INFORMATION
  Report Type: 
  Country: None (occurrence: None)
  Receive Date: 20070301
  Receipt Date: 20060622
  Transmission Date: 20070707
  Serious: Yes (Other)
  Sender: FDA-Public Use
  Company Number: US-BRISTOL-MYERS SQUIBB COMPANY-13420831

PATIENT
  Sex: Female

DRUGS (3)
  1. TAXOL [Suspect]
     Indication: OVARIAN CANCER
  2. CARBOPLATIN [Suspect]
     Indication: OVARIAN CANCER
  3. TOPOTECAN [Suspect]
     Indication: OVARIAN CANCER

REACTIONS (1)
  - MALIGNANT NEOPLASM PROGRESSION [None]
